FAERS Safety Report 14424472 (Version 2)
Quarter: 2018Q1

REPORT INFORMATION
  Report Type: Spontaneous
  Country: JP (occurrence: JP)
  Receive Date: 20180123
  Receipt Date: 20180315
  Transmission Date: 20180509
  Serious: Yes (Death, Life-Threatening)
  Sender: FDA-Public Use
  Company Number: JP-EISAI MEDICAL RESEARCH-EC-2018-035277

PATIENT
  Age: 29 Year
  Sex: Male

DRUGS (3)
  1. ISOBIDE [Concomitant]
     Active Substance: ISOSORBIDE
     Indication: METASTASES TO CENTRAL NERVOUS SYSTEM
     Route: 048
     Dates: start: 20160705, end: 20161128
  2. FENTOS [Concomitant]
     Active Substance: FENTANYL
     Indication: CANCER PAIN
     Route: 062
     Dates: start: 20160518, end: 20161205
  3. HALAVEN [Suspect]
     Active Substance: ERIBULIN MESYLATE
     Indication: EPITHELIOID SARCOMA
     Route: 041
     Dates: start: 20160802, end: 20161122

REACTIONS (2)
  - Sepsis [Fatal]
  - Neutropenia [Fatal]

NARRATIVE: CASE EVENT DATE: 20161127
